FAERS Safety Report 7860080-8 (Version None)
Quarter: 2011Q4

REPORT INFORMATION
  Report Type: 
  Country: None (occurrence: None)
  Receive Date: 20111026
  Receipt Date: 20111012
  Transmission Date: 20120403
  Serious: Yes (Other)
  Sender: FDA-Public Use
  Company Number: TPA2011A06104

PATIENT
  Age: 70 Year
  Sex: Male
  Weight: 75.2971 kg

DRUGS (1)
  1. ACTOS [Suspect]
     Indication: TYPE 2 DIABETES MELLITUS
     Dosage: 45 MG, 1 IN 1 D, PER ORAL
     Route: 048
     Dates: start: 20080101, end: 20110922

REACTIONS (1)
  - BLADDER TRANSITIONAL CELL CARCINOMA [None]
